FAERS Safety Report 25492284 (Version 1)
Quarter: 2025Q2

REPORT INFORMATION
  Report Type: Spontaneous
  Country: GB (occurrence: GB)
  Receive Date: 20250630
  Receipt Date: 20250630
  Transmission Date: 20250717
  Serious: Yes (Life-Threatening, Other)
  Sender: ORGANON
  Company Number: None

PATIENT
  Age: 28 Year
  Sex: Male
  Weight: 75 kg

DRUGS (1)
  1. PROPECIA [Suspect]
     Active Substance: FINASTERIDE

REACTIONS (2)
  - Blood testosterone decreased [Not Recovered/Not Resolved]
  - Medication error [Unknown]

NARRATIVE: CASE EVENT DATE: 20060201
